FAERS Safety Report 24463727 (Version 1)
Quarter: 2024Q4

REPORT INFORMATION
  Report Type: Report from Study
  Country: US (occurrence: US)
  Receive Date: 20241018
  Receipt Date: 20241018
  Transmission Date: 20250114
  Serious: No
  Sender: ROCHE
  Company Number: US-ROCHE-3483884

PATIENT
  Age: 45 Year
  Sex: Female
  Weight: 70.31 kg

DRUGS (13)
  1. XOLAIR [Suspect]
     Active Substance: OMALIZUMAB
     Indication: Idiopathic urticaria
     Dosage: STRENGTH : 150 MG WHICH WAS INJECTED INTO RIGHT AND LEFT ARM LAST INJECTION DATE : 28/DEC/2023
     Route: 058
  2. XOLAIR [Suspect]
     Active Substance: OMALIZUMAB
  3. TAGAMET [Concomitant]
     Active Substance: CIMETIDINE
  4. BENADRYL [Concomitant]
     Active Substance: DIPHENHYDRAMINE HYDROCHLORIDE
  5. ZYRTEC [Concomitant]
     Active Substance: CETIRIZINE HYDROCHLORIDE
  6. PEPCID [Concomitant]
     Active Substance: FAMOTIDINE
  7. PREDNISONE [Concomitant]
     Active Substance: PREDNISONE
  8. MEDROL [Concomitant]
     Active Substance: METHYLPREDNISOLONE
  9. XANAX [Concomitant]
     Active Substance: ALPRAZOLAM
  10. MONTELUKAST [Concomitant]
     Active Substance: MONTELUKAST
     Route: 048
  11. ACETAMINOPHEN\BUTALBITAL\CAFFEINE\CODEINE PHOSPHATE [Concomitant]
     Active Substance: ACETAMINOPHEN\BUTALBITAL\CAFFEINE\CODEINE PHOSPHATE
  12. TOPIRAMATE [Concomitant]
     Active Substance: TOPIRAMATE
     Route: 048
  13. DAPSONE [Concomitant]
     Active Substance: DAPSONE

REACTIONS (2)
  - Pain [Unknown]
  - Middle ear effusion [Unknown]
